FAERS Safety Report 20412254 (Version 2)
Quarter: 2022Q1

REPORT INFORMATION
  Report Type: Spontaneous
  Country: US (occurrence: US)
  Receive Date: 20220201
  Receipt Date: 20220217
  Transmission Date: 20220423
  Serious: No
  Sender: FDA-Public Use
  Company Number: US-BAYER-2022A014242

PATIENT
  Age: 29 Year
  Sex: Male

DRUGS (3)
  1. KOGENATE FS [Suspect]
     Active Substance: ANTIHEMOPHILIC FACTOR, HUMAN RECOMBINANT
     Dosage: 2125 IU, PRN
     Route: 042
  2. HEMLIBRA [Concomitant]
     Active Substance: EMICIZUMAB-KXWH
  3. PFIZER-BIONTECH COVID-19 VACCINE [Concomitant]
     Active Substance: TOZINAMERAN

REACTIONS (5)
  - Illness [None]
  - Influenza like illness [None]
  - Dyspnoea [None]
  - Rhinorrhoea [None]
  - Nasal congestion [None]

NARRATIVE: CASE EVENT DATE: 20211201
